FAERS Safety Report 9373417 (Version 1)
Quarter: 2013Q2

REPORT INFORMATION
  Report Type: Spontaneous
  Country: NL (occurrence: NL)
  Receive Date: 20130627
  Receipt Date: 20130627
  Transmission Date: 20140414
  Serious: Yes (Other)
  Sender: FDA-Public Use
  Company Number: NL-ROXANE LABORATORIES, INC.-2013-RO-01049RO

PATIENT
  Age: 15 Year
  Sex: Male

DRUGS (2)
  1. METHOTREXATE [Suspect]
     Indication: ACUTE LYMPHOCYTIC LEUKAEMIA
  2. VORICONAZOLE [Suspect]
     Indication: ANTIFUNGAL PROPHYLAXIS

REACTIONS (2)
  - Photosensitivity reaction [Unknown]
  - Cheilitis [Unknown]
